FAERS Safety Report 7065067-3 (Version None)
Quarter: 2010Q4

REPORT INFORMATION
  Report Type: 
  Country: None (occurrence: None)
  Receive Date: 20101022
  Receipt Date: 20101022
  Transmission Date: 20110411
  Serious: No
  Sender: FDA-Public Use
  Company Number: None

PATIENT
  Sex: Female
  Weight: 76.6579 kg

DRUGS (2)
  1. CEFUROXIME [Suspect]
     Indication: BRONCHITIS
     Dosage: 500 MG 2X A DAY ORAL  10 DAYS
     Route: 048
  2. CEFUROXIME [Suspect]
     Indication: SINUSITIS
     Dosage: 500 MG 2X A DAY ORAL  10 DAYS
     Route: 048

REACTIONS (1)
  - TINNITUS [None]
